FAERS Safety Report 5554925-4 (Version None)
Quarter: 2007Q4

REPORT INFORMATION
  Report Type: 
  Country: None (occurrence: None)
  Receive Date: 20071213
  Receipt Date: 20071206
  Transmission Date: 20080405
  Serious: Yes (Death)
  Sender: FDA-Public Use
  Company Number: JP-BRACCO-BRO-012336

PATIENT
  Age: 75 Year
  Sex: Female

DRUGS (17)
  1. IOPAMIDOL [Suspect]
     Indication: ARTERIOGRAM CORONARY
     Route: 022
     Dates: start: 20071107, end: 20071107
  2. ATELEC [Concomitant]
     Route: 048
     Dates: start: 20070704
  3. LUDIOMIL                           /00331902/ [Concomitant]
     Route: 048
  4. ASPIRIN [Concomitant]
     Route: 048
     Dates: start: 20070704
  5. ALOSITOL [Concomitant]
     Route: 048
     Dates: start: 20070704
  6. PROTECADIN [Concomitant]
     Route: 048
     Dates: start: 20070704
  7. MICARDIS [Concomitant]
     Route: 048
     Dates: start: 20070704
  8. ALOSENN [Concomitant]
     Route: 048
     Dates: start: 20070704
  9. MYSLEE [Concomitant]
     Route: 048
     Dates: start: 20070704
  10. INDERAL [Concomitant]
     Route: 048
     Dates: start: 20070704
  11. LAC B [Concomitant]
     Route: 048
     Dates: start: 20070704
  12. GASMOTIN [Concomitant]
     Route: 048
     Dates: start: 20070704
  13. SIGMART [Concomitant]
     Route: 048
     Dates: start: 20071102
  14. KREMEZIN [Concomitant]
     Route: 048
     Dates: start: 20070704
  15. FRANDOL [Concomitant]
     Route: 062
     Dates: start: 20070704
  16. FOSAMAC [Concomitant]
     Route: 048
     Dates: start: 20071022
  17. GLYCEOL [Concomitant]
     Route: 042

REACTIONS (6)
  - ANAPHYLACTIC SHOCK [None]
  - BLOOD PRESSURE IMMEASURABLE [None]
  - CARDIAC ARREST [None]
  - MYDRIASIS [None]
  - PUPILLARY REFLEX IMPAIRED [None]
  - RESPIRATORY ARREST [None]
